FAERS Safety Report 9507448 (Version 1)
Quarter: 2013Q1

REPORT INFORMATION
  Report Type: Spontaneous
  Country: US (occurrence: None)
  Receive Date: 20130305
  Receipt Date: 20130305
  Transmission Date: 20140127
  Serious: Yes (Other)
  Sender: FDA-Public Use
  Company Number: 163-21880-12021523

PATIENT
  Age: 48 Year
  Sex: Female
  Weight: 96.62 kg

DRUGS (16)
  1. REVLIMID [Suspect]
     Indication: PLASMA CELL MYELOMA
     Dosage: 10 MG, 21/7, PO
     Route: 048
     Dates: start: 20120114
  2. CHOLECALCIFEROL (COLECALCIFEROL) [Concomitant]
  3. MSO4 (MORPHINE SULFATE) [Concomitant]
  4. OXYCONTIN (OXYCODONE HYDROCHLORIDE) [Concomitant]
  5. FLUDROCORTISONE (FLUDROCORTISONLE) [Concomitant]
  6. ERGOCALCIFEROL (ERGOCALCIFEROL) [Concomitant]
  7. VITAMIN B12 (CYANOCOSALAMIN) [Concomitant]
  8. LEVOTHYROXINE (LEVOTHYROXINE) [Concomitant]
  9. REVATIO (SILDENAFIL CITRATE) [Concomitant]
  10. LEXAPRO (ESCITALOPRAM OXALATE) [Concomitant]
  11. COREG (CARVEDILOL) [Concomitant]
  12. CREON (PANCREATIN) [Concomitant]
  13. CHOLESTYRAMINE (COLESTYRAMINE) [Concomitant]
  14. NEXIUM [Concomitant]
  15. PHENERGAN (PROMETHAZINE HYDROCHLORIDE) [Concomitant]
  16. ASA (ACETYLSALICYLIC ACID) [Concomitant]

REACTIONS (1)
  - Full blood count decreased [None]
